FAERS Safety Report 11904027 (Version 1)
Quarter: 2016Q1

REPORT INFORMATION
  Report Type: Spontaneous
  Country: US (occurrence: US)
  Receive Date: 20160111
  Receipt Date: 20160111
  Transmission Date: 20160526
  Serious: Yes (Death)
  Sender: FDA-Public Use
  Company Number: US-GALENA BIOPHARMA-1046319

PATIENT
  Age: 46 Year
  Sex: Male

DRUGS (3)
  1. ABSTRAL [Suspect]
     Active Substance: FENTANYL CITRATE
     Indication: BREAKTHROUGH PAIN
     Route: 060
     Dates: start: 201311
  2. OXYCODONE HYDROCHLORIDE. [Concomitant]
     Active Substance: OXYCODONE HYDROCHLORIDE
  3. FENTANYL. [Concomitant]
     Active Substance: FENTANYL
     Route: 003

REACTIONS (2)
  - Disease progression [Fatal]
  - Death [None]

NARRATIVE: CASE EVENT DATE: 20131229
